FAERS Safety Report 5731730-7 (Version None)
Quarter: 2008Q2

REPORT INFORMATION
  Report Type: 
  Country: None (occurrence: None)
  Receive Date: 20080508
  Receipt Date: 20080422
  Transmission Date: 20081010
  Serious: Yes (Other)
  Sender: FDA-Public Use
  Company Number: PHHY2008CA06455

PATIENT
  Age: 44 Year
  Sex: Male

DRUGS (5)
  1. CLOZARIL [Suspect]
     Indication: SCHIZOPHRENIA
     Dosage: 200 MG, UNK
     Route: 048
     Dates: start: 20071112, end: 20080317
  2. CLONAZEPAM [Concomitant]
     Dosage: 1 MG, QHS
     Route: 048
  3. COLACE [Concomitant]
     Dosage: 100 MG, BID
     Route: 048
  4. COGENTIN [Concomitant]
     Dosage: 2 MG, ONCE/SINGLE
     Route: 048
  5. FLUANXOL [Concomitant]
     Dosage: 50 MG Q 2 WEEKS
     Route: 030

REACTIONS (2)
  - HYPERGLYCAEMIA [None]
  - HYPERLIPIDAEMIA [None]
